FAERS Safety Report 10366594 (Version 2)
Quarter: 2014Q4

REPORT INFORMATION
  Report Type: Spontaneous
  Country: FR (occurrence: None)
  Receive Date: 20140804
  Receipt Date: 20141128
  Transmission Date: 20150528
  Serious: Yes (Hospitalization, Other)
  Sender: FDA-Public Use
  Company Number: 2014FR002795

PATIENT
  Age: 54 Year
  Sex: Male

DRUGS (2)
  1. ELIGARD [Suspect]
     Active Substance: LEUPROLIDE ACETATE
     Indication: PROSTATE CANCER METASTATIC
     Dosage: 1 DF, CYCLIC, OTHER
     Dates: start: 201202, end: 201401
  2. LEUPRORELIN [Suspect]
     Active Substance: LEUPROLIDE ACETATE
     Indication: PROSTATE CANCER METASTATIC
     Dosage: 1 DF, CYCLIC, OTHER
     Route: 058
     Dates: start: 20140122, end: 201406

REACTIONS (7)
  - Staphylococcus test positive [None]
  - Pulmonary mycosis [None]
  - Allergic granulomatous angiitis [None]
  - Candida test positive [None]
  - Asthma [None]
  - Eosinophilia [None]
  - Geotrichum infection [None]

NARRATIVE: CASE EVENT DATE: 201212
